FAERS Safety Report 8591410-X (Version None)
Quarter: 2012Q3

REPORT INFORMATION
  Report Type: 
  Country: None (occurrence: None)
  Receive Date: 20120801
  Receipt Date: 20120717
  Transmission Date: 20120928
  Serious: Yes (Hospitalization)
  Sender: FDA-Public Use
  Company Number: JPI-P-020248

PATIENT
  Age: 22 Year
  Sex: Female

DRUGS (9)
  1. AMITRIPTYLINE HCL [Concomitant]
  2. ETHINYL ESTRADIOL AND LEVONORGESTREL (TABLETS) [Concomitant]
  3. XYREM [Suspect]
     Indication: CATAPLEXY
     Dosage: SEE IMAGE
     Route: 048
     Dates: start: 20120401, end: 20120401
  4. XYREM [Suspect]
     Indication: CATAPLEXY
     Dosage: SEE IMAGE
     Route: 048
     Dates: start: 20120305, end: 20120301
  5. XYREM [Suspect]
     Indication: CATAPLEXY
     Dosage: SEE IMAGE
     Route: 048
     Dates: start: 20120701
  6. SERTRALINE HYDROCHLORIDE [Concomitant]
  7. CLONAZEPAM [Concomitant]
  8. ARMODAFINIL [Suspect]
     Indication: NARCOLEPSY
     Dosage: (150 MG,1 D) : (250 MG, 1 D)
     Dates: start: 20120201, end: 20120310
  9. ARMODAFINIL [Suspect]
     Indication: NARCOLEPSY
     Dosage: (150 MG,1 D) : (250 MG, 1 D)
     Dates: start: 20120311, end: 20120311

REACTIONS (12)
  - GALLBLADDER DISORDER [None]
  - ABDOMINAL PAIN [None]
  - RETCHING [None]
  - NARCOLEPSY [None]
  - DEHYDRATION [None]
  - ABDOMINAL PAIN UPPER [None]
  - FEELING DRUNK [None]
  - DIZZINESS [None]
  - SOMNOLENCE [None]
  - GASTROINTESTINAL VIRAL INFECTION [None]
  - NAUSEA [None]
  - ANXIETY [None]
